FAERS Safety Report 20536248 (Version 2)
Quarter: 2022Q1

REPORT INFORMATION
  Report Type: Report from Study
  Country: JP (occurrence: JP)
  Receive Date: 20220302
  Receipt Date: 20220322
  Transmission Date: 20220423
  Serious: Yes (Death, Hospitalization, Disabling, Other)
  Sender: FDA-Public Use
  Company Number: JP-CHUGAI-2021030004

PATIENT
  Age: 78 Year
  Sex: Male
  Weight: 61 kg

DRUGS (3)
  1. ATEZOLIZUMAB [Suspect]
     Active Substance: ATEZOLIZUMAB
     Indication: Non-small cell lung cancer
     Dosage: UNK
     Route: 041
     Dates: start: 20210615
  2. PEMETREXED DISODIUM [Suspect]
     Active Substance: PEMETREXED DISODIUM
     Indication: Non-small cell lung cancer
     Dosage: UNK
     Route: 041
     Dates: start: 20210615
  3. CARBOPLATIN [Suspect]
     Active Substance: CARBOPLATIN
     Indication: Non-small cell lung cancer
     Dosage: UNK
     Route: 041
     Dates: start: 20210615

REACTIONS (3)
  - Pneumonitis [Not Recovered/Not Resolved]
  - Lung neoplasm malignant [Unknown]
  - Disease progression [Fatal]

NARRATIVE: CASE EVENT DATE: 20211126
